FAERS Safety Report 6634423-7 (Version None)
Quarter: 2010Q1

REPORT INFORMATION
  Report Type: 
  Country: None (occurrence: None)
  Receive Date: 20100311
  Receipt Date: 20100311
  Transmission Date: 20100710
  Serious: No
  Sender: FDA-Public Use
  Company Number: None

PATIENT
  Age: 43 Year
  Sex: Female

DRUGS (1)
  1. MAGNEVIST [Suspect]
     Indication: NUCLEAR MAGNETIC RESONANCE IMAGING
     Dosage: 20ML ONCE IV
     Route: 042
     Dates: start: 20100303, end: 20100303

REACTIONS (4)
  - DIARRHOEA [None]
  - EYE SWELLING [None]
  - NAUSEA [None]
  - SWELLING FACE [None]
